FAERS Safety Report 5481285-X (Version None)
Quarter: 2007Q4

REPORT INFORMATION
  Report Type: 
  Country: None (occurrence: None)
  Receive Date: 20071005
  Receipt Date: 20071005
  Transmission Date: 20080405
  Serious: Yes (Other)
  Sender: FDA-Public Use
  Company Number: None

PATIENT
  Sex: Male
  Weight: 87.0906 kg

DRUGS (1)
  1. TRUSOPT [Suspect]
     Indication: GLAUCOMA
     Dosage: DROP  EVERY 12 HRS   INTRAOCULAR
     Route: 031

REACTIONS (2)
  - EYELID DISORDER [None]
  - RASH [None]
